FAERS Safety Report 15072015 (Version 1)
Quarter: 2018Q2

REPORT INFORMATION
  Report Type: Report from Study
  Country: DE (occurrence: DE)
  Receive Date: 20180626
  Receipt Date: 20180626
  Transmission Date: 20180711
  Serious: No
  Sender: FDA-Public Use
  Company Number: DE-BIOVERATIV-2018BV000403

PATIENT
  Age: 57 Year
  Sex: Male

DRUGS (2)
  1. ELOCTA [Suspect]
     Active Substance: EFMOROCTOCOG ALFA
     Indication: PRODUCT USED FOR UNKNOWN INDICATION
     Dosage: VIA PORT CATHETER
     Route: 050
     Dates: start: 20180502
  2. ELOCTA [Suspect]
     Active Substance: EFMOROCTOCOG ALFA
     Dosage: RECEIVED BY MISTAKE ONLY 4000IU
     Route: 065
     Dates: start: 20180618

REACTIONS (4)
  - Vomiting [Unknown]
  - Blood urine present [Unknown]
  - Underdose [Unknown]
  - Decreased appetite [Unknown]

NARRATIVE: CASE EVENT DATE: 20180617
